FAERS Safety Report 17387144 (Version 5)
Quarter: 2020Q1

REPORT INFORMATION
  Report Type: Spontaneous
  Country: JP (occurrence: JP)
  Receive Date: 20200206
  Receipt Date: 20200310
  Transmission Date: 20200409
  Serious: Yes (Other)
  Sender: FDA-Public Use
  Company Number: JP-PFIZER INC-2020050911

PATIENT
  Age: 57 Year
  Sex: Male

DRUGS (4)
  1. VORICONAZOLE. [Concomitant]
     Active Substance: VORICONAZOLE
     Indication: ANTIBIOTIC PROPHYLAXIS
     Dosage: UNK
  2. MEROPENEM. [Suspect]
     Active Substance: MEROPENEM
     Dosage: UNK
     Route: 041
  3. COLISTIN [Suspect]
     Active Substance: COLISTIN
     Indication: ENTEROBACTER INFECTION
     Dosage: UNK
  4. LEVOFLOXACIN. [Concomitant]
     Active Substance: LEVOFLOXACIN
     Indication: ANTIBIOTIC PROPHYLAXIS
     Dosage: UNK

REACTIONS (3)
  - Renal impairment [Recovering/Resolving]
  - Neuropathy peripheral [Recovering/Resolving]
  - Asthenia [Recovering/Resolving]
